FAERS Safety Report 5383132-3 (Version None)
Quarter: 2007Q3

REPORT INFORMATION
  Report Type: 
  Country: None (occurrence: None)
  Receive Date: 20070710
  Receipt Date: 20070702
  Transmission Date: 20080115
  Serious: Yes (Hospitalization)
  Sender: FDA-Public Use
  Company Number: US-ELI_LILLY_AND_COMPANY-US200703002263

PATIENT
  Age: 51 Year
  Sex: Male
  Weight: 206.35 kg

DRUGS (11)
  1. BYETTA [Suspect]
     Indication: TYPE 2 DIABETES MELLITUS
     Dosage: 5 UG, UNK
     Route: 058
     Dates: start: 20060101, end: 20060201
  2. BYETTA [Suspect]
     Dosage: 10 UG, UNK
     Route: 058
     Dates: start: 20051101, end: 20060101
  3. LASIX [Concomitant]
     Dates: start: 19970101
  4. NEURONTIN [Concomitant]
     Dosage: 900 MG, 3/D
     Dates: start: 20020101
  5. HUMULIN R [Concomitant]
     Dates: start: 19960101
  6. IMMUNOSUPPRESSIVE AGENTS [Concomitant]
     Dates: start: 19970101
  7. COZAAR [Concomitant]
     Dosage: 50 MG, DAILY (1/D)
  8. LOPRESSOR [Concomitant]
     Dosage: 50 MG, 2/D
  9. HUMULIN N [Concomitant]
     Dosage: UNK, UNKNOWN
  10. FOLTX [Concomitant]
     Dosage: 1 UNK, 2/D
  11. GENGRAF [Concomitant]
     Dosage: 125 MG, 2/D

REACTIONS (5)
  - BENIGN NEOPLASM OF BLADDER [None]
  - BENIGN PROSTATIC HYPERPLASIA [None]
  - CYSTITIS NONINFECTIVE [None]
  - HAEMATURIA [None]
  - POLLAKIURIA [None]
